FAERS Safety Report 23911816 (Version 3)
Quarter: 2025Q2

REPORT INFORMATION
  Report Type: Report from Study
  Country: GB (occurrence: GB)
  Receive Date: 20240528
  Receipt Date: 20250429
  Transmission Date: 20250716
  Serious: Yes (Other)
  Sender: NOVARTIS
  Company Number: GB-002147023-NVSC2024GB111786

PATIENT
  Age: 61 Year
  Sex: Female

DRUGS (2)
  1. KESIMPTA [Suspect]
     Active Substance: OFATUMUMAB
     Indication: Relapsing-remitting multiple sclerosis
     Dosage: 20 MG, QW
     Route: 058
     Dates: start: 20240507
  2. KESIMPTA [Suspect]
     Active Substance: OFATUMUMAB
     Indication: Multiple sclerosis
     Dosage: 20 MG, QMO
     Route: 058
     Dates: start: 20240516

REACTIONS (18)
  - Multiple sclerosis relapse [Not Recovered/Not Resolved]
  - Limb discomfort [Unknown]
  - Emotional disorder [Unknown]
  - Fatigue [Unknown]
  - Hyperaesthesia [Unknown]
  - Pulse abnormal [Unknown]
  - Brain fog [Unknown]
  - Depressed mood [Unknown]
  - Paraesthesia [Unknown]
  - Electric shock [Unknown]
  - Pruritus [Unknown]
  - Anxiety [Unknown]
  - Lower respiratory tract infection [Recovered/Resolved]
  - Sputum discoloured [Recovered/Resolved]
  - Trigeminal neuralgia [Unknown]
  - Inappropriate schedule of product administration [Recovered/Resolved]
  - Nasopharyngitis [Recovered/Resolved]
  - Cough [Recovered/Resolved]

NARRATIVE: CASE EVENT DATE: 20240517
